FAERS Safety Report 21269571 (Version 1)
Quarter: 2022Q3

REPORT INFORMATION
  Report Type: Spontaneous
  Country: US (occurrence: US)
  Receive Date: 20220830
  Receipt Date: 20220830
  Transmission Date: 20221027
  Serious: No
  Sender: FDA-Public Use
  Company Number: US-AMGEN-USASP2022147848

PATIENT
  Sex: Male

DRUGS (1)
  1. OTEZLA [Suspect]
     Active Substance: APREMILAST
     Indication: Psoriasis
     Dosage: UNK (TITRATION PACK 28 DAY 10, 20, 30, FOLLOW PACKAGE INSTRUCTIONS ENCLOSED)
     Route: 048

REACTIONS (1)
  - Product dose omission issue [Not Recovered/Not Resolved]
